FAERS Safety Report 5778384-1 (Version None)
Quarter: 2008Q2

REPORT INFORMATION
  Report Type: 
  Country: None (occurrence: None)
  Receive Date: 20080619
  Receipt Date: 20080610
  Transmission Date: 20081010
  Serious: Yes (Other)
  Sender: FDA-Public Use
  Company Number: US-BAYER-200825409NA

PATIENT
  Sex: Male

DRUGS (5)
  1. CIPRO [Suspect]
     Indication: DRUG USE FOR UNKNOWN INDICATION
     Route: 048
  2. LYRICA [Concomitant]
  3. FENTANYL TRANSDERMAL SYSTEM [Concomitant]
  4. CYMBALTA [Concomitant]
  5. KLONOPIN [Concomitant]

REACTIONS (9)
  - DEPRESSION [None]
  - FATIGUE [None]
  - INSOMNIA [None]
  - LOSS OF EMPLOYMENT [None]
  - NEUROPATHY PERIPHERAL [None]
  - PANIC ATTACK [None]
  - SUICIDE ATTEMPT [None]
  - TENDON RUPTURE [None]
  - TREMOR [None]
